FAERS Safety Report 13015927 (Version 1)
Quarter: 2016Q4

REPORT INFORMATION
  Report Type: Spontaneous
  Country: US (occurrence: US)
  Receive Date: 20161212
  Receipt Date: 20161212
  Transmission Date: 20170207
  Serious: No
  Sender: FDA-Public Use
  Company Number: US-JNJFOC-20161100345

PATIENT
  Sex: Male
  Weight: 90.72 kg

DRUGS (2)
  1. XARELTO [Suspect]
     Active Substance: RIVAROXABAN
     Indication: DEEP VEIN THROMBOSIS
     Route: 048
     Dates: start: 201503
  2. XARELTO [Suspect]
     Active Substance: RIVAROXABAN
     Indication: FACTOR V DEFICIENCY
     Route: 048
     Dates: start: 201503

REACTIONS (1)
  - Tooth extraction [Unknown]
